FAERS Safety Report 7595623-5 (Version None)
Quarter: 2011Q3

REPORT INFORMATION
  Report Type: 
  Country: None (occurrence: None)
  Receive Date: 20110707
  Receipt Date: 20110625
  Transmission Date: 20111222
  Serious: Yes (Hospitalization)
  Sender: FDA-Public Use
  Company Number: US-DX529-2011DX000029

PATIENT
  Age: 41 Year
  Sex: Female

DRUGS (29)
  1. FLOVENT [Concomitant]
     Indication: PRODUCT USED FOR UNKNOWN INDICATION
     Route: 055
  2. RELPAX [Concomitant]
     Indication: MIGRAINE
     Route: 048
     Dates: start: 20110606
  3. KALBITOR [Suspect]
     Route: 058
     Dates: start: 20110607, end: 20110607
  4. CINRYZE [Suspect]
     Indication: HEREDITARY ANGIOEDEMA
     Route: 042
     Dates: start: 20110607, end: 20110607
  5. DILAUDID [Suspect]
     Route: 042
     Dates: start: 20110607, end: 20110607
  6. ALUMINIUM HYDROXI W/MAGNESIUM HYDROX/SIMETHIC [Concomitant]
     Indication: NAUSEA
     Route: 048
     Dates: start: 20110606, end: 20110607
  7. KALBITOR [Suspect]
     Indication: HEREDITARY ANGIOEDEMA
     Route: 058
     Dates: start: 20110606, end: 20110606
  8. DILAUDID [Suspect]
     Route: 042
     Dates: start: 20110607, end: 20110607
  9. WELLBUTRIN [Concomitant]
     Indication: PRODUCT USED FOR UNKNOWN INDICATION
     Route: 048
  10. PHENERGAN                          /00033001/ [Concomitant]
     Indication: PRODUCT USED FOR UNKNOWN INDICATION
     Route: 048
     Dates: start: 20110607
  11. VICODIN [Concomitant]
     Indication: PRODUCT USED FOR UNKNOWN INDICATION
     Route: 048
  12. LIDODERM [Concomitant]
     Indication: BACK PAIN
     Route: 061
  13. SENOKOT [Concomitant]
     Indication: PRODUCT USED FOR UNKNOWN INDICATION
     Route: 048
     Dates: end: 20110607
  14. PROTONIX [Concomitant]
     Indication: PRODUCT USED FOR UNKNOWN INDICATION
     Route: 048
     Dates: start: 20110607, end: 20110607
  15. DILAUDID [Suspect]
     Indication: PAIN
     Route: 042
     Dates: start: 20110606, end: 20110606
  16. TOPAMAX [Concomitant]
     Indication: PRODUCT USED FOR UNKNOWN INDICATION
     Route: 048
     Dates: start: 20110606
  17. ZOFRAN [Suspect]
     Indication: NAUSEA
     Route: 042
     Dates: start: 20110606, end: 20110606
  18. NASONEX [Concomitant]
     Indication: PRODUCT USED FOR UNKNOWN INDICATION
     Route: 045
  19. ASTEPRO [Concomitant]
     Indication: PRODUCT USED FOR UNKNOWN INDICATION
     Route: 045
  20. ATARAX [Concomitant]
     Indication: PRODUCT USED FOR UNKNOWN INDICATION
     Route: 048
  21. PREVACID [Concomitant]
     Indication: PRODUCT USED FOR UNKNOWN INDICATION
     Route: 048
  22. RANITIDINE [Concomitant]
     Indication: PREMEDICATION
     Route: 048
  23. MAXALT                             /01406501/ [Concomitant]
     Indication: PRODUCT USED FOR UNKNOWN INDICATION
     Route: 048
  24. DILAUDID [Suspect]
     Route: 042
     Dates: start: 20110607, end: 20110607
  25. ZYRTEC [Concomitant]
     Indication: PRODUCT USED FOR UNKNOWN INDICATION
     Route: 048
  26. SINGULAIR [Concomitant]
     Indication: PRODUCT USED FOR UNKNOWN INDICATION
     Route: 048
  27. MAXAIR [Concomitant]
     Indication: WHEEZING
     Route: 055
  28. ZOFRAN [Suspect]
     Route: 042
     Dates: start: 20110607, end: 20110607
  29. TYLENOL (CAPLET) [Concomitant]
     Indication: PRODUCT USED FOR UNKNOWN INDICATION
     Route: 048
     Dates: end: 20110607

REACTIONS (3)
  - DEHYDRATION [None]
  - MIGRAINE [None]
  - HEREDITARY ANGIOEDEMA [None]
